FAERS Safety Report 11165918 (Version 1)
Quarter: 2015Q2

REPORT INFORMATION
  Report Type: Report from Study
  Country: JP (occurrence: JP)
  Receive Date: 20150604
  Receipt Date: 20150604
  Transmission Date: 20150821
  Serious: Yes (Hospitalization)
  Sender: FDA-Public Use
  Company Number: JP-EISAI MEDICAL RESEARCH-EC-2015-007255

PATIENT
  Age: 77 Year
  Sex: Male

DRUGS (12)
  1. ARICEPT [Suspect]
     Active Substance: DONEPEZIL HYDROCHLORIDE
     Indication: DEMENTIA ALZHEIMER^S TYPE
     Route: 048
     Dates: start: 20140513, end: 20140527
  2. ARICEPT [Suspect]
     Active Substance: DONEPEZIL HYDROCHLORIDE
     Route: 048
     Dates: start: 20140528, end: 20140709
  3. BIOFERMIN [Concomitant]
     Active Substance: BACILLUS SUBTILIS\LACTOBACILLUS ACIDOPHILUS\STREPTOCOCCUS FAECAIS
  4. GRACEVIT [Concomitant]
     Active Substance: SITAFLOXACIN
  5. PLETAAL [Concomitant]
     Active Substance: CILOSTAZOL
  6. CEREKINON [Concomitant]
     Active Substance: TRIMEBUTINE
  7. RIVOTRIL [Concomitant]
     Active Substance: CLONAZEPAM
  8. ARICEPT [Suspect]
     Active Substance: DONEPEZIL HYDROCHLORIDE
     Route: 048
     Dates: start: 20140710, end: 20141001
  9. LOTRIGA [Concomitant]
     Active Substance: OMEGA-3-ACID ETHYL ESTERS
  10. MUCOSAL [Concomitant]
  11. EPADEL [Concomitant]
     Active Substance: ICOSAPENT
  12. CLEANAL [Concomitant]
     Active Substance: FUDOSTEINE

REACTIONS (1)
  - Faeces discoloured [Unknown]

NARRATIVE: CASE EVENT DATE: 20141001
